FAERS Safety Report 9737461 (Version 1)
Quarter: 2013Q4

REPORT INFORMATION
  Report Type: Spontaneous
  Country: JP (occurrence: JP)
  Receive Date: 20131206
  Receipt Date: 20131206
  Transmission Date: 20140711
  Serious: No
  Sender: FDA-Public Use
  Company Number: JP-SUCAMPO PHARMA AMERICAS, INC-SPI201300831

PATIENT
  Age: 5 Decade
  Sex: Male

DRUGS (1)
  1. AMITIZA [Suspect]
     Indication: CONSTIPATION
     Dosage: 24 MCG, UNK
     Route: 048

REACTIONS (3)
  - Choking [Unknown]
  - Flatulence [Unknown]
  - Dyspnoea [Unknown]
